FAERS Safety Report 16900282 (Version 1)
Quarter: 2019Q4

REPORT INFORMATION
  Report Type: Spontaneous
  Country: JP (occurrence: JP)
  Receive Date: 20191009
  Receipt Date: 20191009
  Transmission Date: 20200122
  Serious: Yes (Hospitalization, Disabling, Other)
  Sender: FDA-Public Use
  Company Number: JP-REGENERON PHARMACEUTICALS, INC.-2019-44638

PATIENT

DRUGS (12)
  1. EYLEA [Suspect]
     Active Substance: AFLIBERCEPT
     Dosage: DAILY DOSE 0.05 ML, LEFT EYE
     Route: 031
     Dates: start: 20170529, end: 20170529
  2. XYLOCAINE [Concomitant]
     Active Substance: LIDOCAINE HYDROCHLORIDE
     Indication: ANAESTHESIA PROCEDURE
     Route: 047
  3. EYLEA [Suspect]
     Active Substance: AFLIBERCEPT
     Indication: DIABETIC RETINAL OEDEMA
     Dosage: 0.05 ML, Q1MON
     Route: 031
     Dates: start: 20160113, end: 20160113
  4. EYLEA [Suspect]
     Active Substance: AFLIBERCEPT
     Dosage: DAILY DOSE 0.05 ML, LEFT EYE
     Route: 031
     Dates: start: 20170925, end: 20170925
  5. EYLEA [Suspect]
     Active Substance: AFLIBERCEPT
     Dosage: DAILY DOSE 0.05 ML, LEFT EYE
     Route: 031
     Dates: start: 20171030, end: 20171030
  6. VEGAMOX [Concomitant]
     Active Substance: MOXIFLOXACIN HYDROCHLORIDE
     Indication: INFECTION PROPHYLAXIS
     Dosage: DAILY DOSE 4 DROP, BOTH EYES
     Route: 047
  7. POVIDONE-IODINE. [Concomitant]
     Active Substance: POVIDONE-IODINE
     Indication: INFECTION PROPHYLAXIS
     Dosage: BOTH EYES
     Route: 047
  8. EYLEA [Suspect]
     Active Substance: AFLIBERCEPT
     Dosage: DAILY DOSE 0.05 ML, LEFT EYE
     Route: 031
     Dates: start: 20170424, end: 20170424
  9. EYLEA [Suspect]
     Active Substance: AFLIBERCEPT
     Indication: RETINAL VEIN OCCLUSION
     Dosage: DAILY DOSE 0.05 ML, RIGHT EYE
     Route: 031
     Dates: start: 20170327, end: 20170327
  10. EYLEA [Suspect]
     Active Substance: AFLIBERCEPT
     Dosage: DAILY DOSE 0.05 ML, RIGHT EYE
     Route: 031
     Dates: start: 20170828, end: 20170828
  11. EYLEA [Suspect]
     Active Substance: AFLIBERCEPT
     Dosage: DAILY DOSE 0.05 ML, LEFT EYE
     Route: 031
     Dates: start: 20171127, end: 20171127
  12. EYLEA [Suspect]
     Active Substance: AFLIBERCEPT
     Dosage: DAILY DOSE 0.05 ML, LEFT EYE
     Route: 031
     Dates: start: 20170731, end: 20170731

REACTIONS (2)
  - Monoplegia [Unknown]
  - Cerebral infarction [Recovered/Resolved with Sequelae]

NARRATIVE: CASE EVENT DATE: 20171220
